FAERS Safety Report 17674793 (Version 1)
Quarter: 2020Q2

REPORT INFORMATION
  Report Type: Report from Study
  Country: IT (occurrence: IT)
  Receive Date: 20200416
  Receipt Date: 20200416
  Transmission Date: 20200714
  Serious: Yes (Hospitalization)
  Sender: FDA-Public Use
  Company Number: IT-ROCHE-2161827

PATIENT
  Age: 60 Year
  Sex: Female
  Weight: 54 kg

DRUGS (30)
  1. CARBOPLATIN. [Suspect]
     Active Substance: CARBOPLATIN
     Indication: OVARIAN CANCER
     Dosage: AT A DOSE TO ACHIEVE A TARGET AREA UNDER THE CURVE (AUC) OF 6 MILLIGRAMS PER MILLILITER*MINUTE?ON 05
     Route: 042
     Dates: start: 20180420
  2. DESAMETASONE [Concomitant]
     Active Substance: DEXAMETHASONE
     Route: 065
     Dates: start: 20180702, end: 20180702
  3. PLASIL [METOCLOPRAMIDE] [Concomitant]
     Route: 065
     Dates: start: 20180727, end: 20180802
  4. MENJUGATE [MENINGOCOCCAL VACCINE] [Concomitant]
     Route: 065
     Dates: start: 20180703, end: 20180703
  5. PNEUMOVAX 23 [Concomitant]
     Active Substance: PNEUMOCOCCAL VACCINE, POLYVALENT 23
     Route: 065
     Dates: start: 20180705, end: 20180705
  6. ONDANSETRON [Concomitant]
     Active Substance: ONDANSETRON
     Route: 065
     Dates: start: 20180702, end: 20180702
  7. ALL OTHER THERAPEUTIC PRODUCTS [Concomitant]
     Active Substance: UNSPECIFIED INGREDIENT
     Route: 065
     Dates: start: 20180702, end: 20180702
  8. BEVACIZUMAB. [Suspect]
     Active Substance: BEVACIZUMAB
     Indication: OVARIAN CANCER
     Dosage: ON 11/MAY/2018, THE PATIENT RECEIVED THE MOST RECENT DOSE OF BEVACIZUMAB (990 MG) PRIOR TO ONSET OF
     Route: 042
     Dates: start: 20180420
  9. RINGER LATTATO [Concomitant]
     Route: 065
     Dates: start: 20180702, end: 20180707
  10. XARENEL [Concomitant]
     Indication: OSTEOPOROSIS
     Route: 065
     Dates: start: 20150101
  11. CEFAZOLINA [CEFAZOLIN] [Concomitant]
     Route: 065
     Dates: start: 20180702, end: 20180703
  12. FUROSEMIDE. [Concomitant]
     Active Substance: FUROSEMIDE
     Route: 065
     Dates: start: 20180703, end: 20180703
  13. PLASIL [METOCLOPRAMIDE] [Concomitant]
     Route: 065
     Dates: start: 20180702, end: 20180703
  14. PROPOFOL. [Concomitant]
     Active Substance: PROPOFOL
     Route: 065
     Dates: start: 20180702, end: 20180702
  15. FENTANEST [FENTANYL] [Concomitant]
     Route: 065
     Dates: start: 20180702, end: 20180702
  16. PARACETAMOL [Concomitant]
     Active Substance: ACETAMINOPHEN
     Indication: PAIN
     Route: 065
     Dates: start: 20180711
  17. KETOROLAC [Concomitant]
     Active Substance: KETOROLAC TROMETHAMINE
     Route: 065
     Dates: start: 20180702, end: 20180710
  18. CACIT [CALCIUM CARBONATE] [Concomitant]
     Active Substance: CALCIUM CARBONATE
     Indication: OSTEOPOROSIS
     Route: 065
     Dates: start: 20150101
  19. PALEXIA [Concomitant]
     Active Substance: TAPENTADOL HYDROCHLORIDE
     Route: 065
     Dates: start: 20180711
  20. BLINDED ATEZOLIZUMAB [Suspect]
     Active Substance: ATEZOLIZUMAB
     Indication: OVARIAN CANCER
     Dosage: ON 05/JUN/2018, THE PATIENT RECEIVED THE MOST RECENT DOSE OF BLINDED ATEZOLIZUMAB PRIOR TO ONSET OF
     Route: 042
     Dates: start: 20180420
  21. PACLITAXEL. [Suspect]
     Active Substance: PACLITAXEL
     Indication: OVARIAN CANCER
     Dosage: ON 05/JUN/2018, THE PATIENT RECEIVED THE MOST RECENT DOSE OF PACLITAXEL (287 MG) PRIOR TO ONSET OF T
     Route: 042
     Dates: start: 20180420
  22. CLEXANE [Concomitant]
     Active Substance: ENOXAPARIN SODIUM
     Route: 065
     Dates: start: 20180702, end: 20180811
  23. LANSOPRAZOLO [Concomitant]
     Active Substance: LANSOPRAZOLE
     Route: 065
     Dates: start: 20180711, end: 20180811
  24. PERFALGAN [Concomitant]
     Active Substance: ACETAMINOPHEN
     Route: 065
     Dates: start: 20180703, end: 20180707
  25. OLIMEL [Concomitant]
     Active Substance: AMINO ACIDS\DEXTROSE\SOYBEAN OIL
     Route: 065
     Dates: start: 20180707, end: 20180708
  26. MORFINA [MORPHINE] [Concomitant]
     Route: 065
     Dates: start: 20180703, end: 20180703
  27. CONTRAMAL [Concomitant]
     Active Substance: TRAMADOL HYDROCHLORIDE
     Route: 065
     Dates: start: 20180702, end: 20180703
  28. PARACETAMOL [Concomitant]
     Active Substance: ACETAMINOPHEN
     Route: 065
     Dates: start: 20180703, end: 20180703
  29. RANITIDINE. [Concomitant]
     Active Substance: RANITIDINE
     Route: 065
     Dates: start: 20180702, end: 20180707
  30. METRONIDAZOLO [Concomitant]
     Active Substance: METRONIDAZOLE
     Route: 065
     Dates: start: 20180703, end: 20180703

REACTIONS (1)
  - Small intestinal obstruction [Recovered/Resolved]

NARRATIVE: CASE EVENT DATE: 20180724
